FAERS Safety Report 8930131 (Version 1)
Quarter: 2012Q4

REPORT INFORMATION
  Report Type: 
  Country: US (occurrence: US)
  Receive Date: 20121128
  Receipt Date: 20121128
  Transmission Date: 20130627
  Serious: Yes (Other)
  Sender: FDA-Public Use
  Company Number: US-BRISTOL-MYERS SQUIBB COMPANY-17137936

PATIENT
  Age: 53 Year
  Sex: Female
  Weight: 84.35 kg

DRUGS (1)
  1. ABATACEPT SUBQ INJECTION 125MG/ML [Suspect]
     Indication: RHEUMATOID ARTHRITIS
     Dosage: last inf:9Nov12
     Route: 058

REACTIONS (8)
  - Gallbladder disorder [Unknown]
  - Chronic obstructive pulmonary disease [Unknown]
  - Fall [Unknown]
  - Joint swelling [Unknown]
  - Haematochezia [Unknown]
  - Vomiting [Unknown]
  - Weight decreased [Unknown]
  - Blood glucose increased [Unknown]
